FAERS Safety Report 9179048 (Version 1)
Quarter: 2013Q1

REPORT INFORMATION
  Report Type: Spontaneous
  Country: US (occurrence: US)
  Receive Date: 20130321
  Receipt Date: 20130321
  Transmission Date: 20140127
  Serious: Yes (Hospitalization)
  Sender: FDA-Public Use
  Company Number: US-BAYER-2013-032625

PATIENT
  Age: 27 Year
  Sex: Female
  Weight: 63 kg

DRUGS (8)
  1. YASMIN [Suspect]
  2. YAZ [Suspect]
  3. DEXEDRINE [Concomitant]
  4. RESTORIL [Concomitant]
  5. AMBIEN [Concomitant]
  6. SONATA [Concomitant]
  7. TORADOL [Concomitant]
  8. MORPHINE [Concomitant]

REACTIONS (1)
  - Pulmonary embolism [Recovering/Resolving]
